FAERS Safety Report 8991240 (Version 1)
Quarter: 2012Q4

REPORT INFORMATION
  Report Type: Spontaneous
  Country: US (occurrence: None)
  Receive Date: 20121227
  Receipt Date: 20121227
  Transmission Date: 20130627
  Serious: Yes (Other)
  Sender: FDA-Public Use
  Company Number: None

PATIENT
  Age: 42 Year
  Sex: Female
  Weight: 51.26 kg

DRUGS (4)
  1. FLUTICASONE PROPIONATE [Suspect]
     Indication: SINUSITIS
     Dosage: 2 sprays 1x/day Nasal
     Dates: start: 20121014, end: 20121108
  2. FLUTICASONE PROPIONATE [Suspect]
     Dosage: 2 sprays 1x/day Nasal
     Dates: start: 20121014, end: 20121108
  3. FLUTICASONE PROPIONATE [Suspect]
     Indication: SINUSITIS
     Dates: start: 20121120, end: 20121223
  4. FLUTICASONE PROPIONATE [Suspect]
     Dates: start: 20121120, end: 20121223

REACTIONS (1)
  - Anosmia [None]
